FAERS Safety Report 12546660 (Version 1)
Quarter: 2016Q3

REPORT INFORMATION
  Report Type: Spontaneous
  Country: US (occurrence: US)
  Receive Date: 20160711
  Receipt Date: 20160711
  Transmission Date: 20161109
  Serious: Yes (Hospitalization, Other)
  Sender: FDA-Public Use
  Company Number: US-GLAXOSMITHKLINE-US2016GSK097171

PATIENT
  Age: 57 Year
  Sex: Male
  Weight: 54.6 kg

DRUGS (13)
  1. ABH (LORAZEPAM, DIPHENHYDRAMINE, HALOPERIDOL) [Concomitant]
  2. DILAUDID [Concomitant]
     Active Substance: HYDROMORPHONE HYDROCHLORIDE
  3. MS CONTIN [Concomitant]
     Active Substance: MORPHINE SULFATE
  4. PREVIDENT [Concomitant]
     Active Substance: SODIUM FLUORIDE
  5. COMPAZINE [Concomitant]
     Active Substance: PROCHLORPERAZINE MALEATE
  6. MORPHINE SULFATE IR [Concomitant]
     Active Substance: MORPHINE SULFATE
  7. PRILOSEC [Concomitant]
     Active Substance: OMEPRAZOLE MAGNESIUM
  8. LOPRESSOR [Concomitant]
     Active Substance: METOPROLOL TARTRATE
  9. METHOCARBAMOL. [Concomitant]
     Active Substance: METHOCARBAMOL
  10. ULTRAM [Concomitant]
     Active Substance: TRAMADOL HYDROCHLORIDE
  11. NORTRIPTYLINE [Concomitant]
     Active Substance: NORTRIPTYLINE
  12. SENOKOT-S [Concomitant]
     Active Substance: DOCUSATE SODIUM\SENNOSIDES
  13. VALTREX [Suspect]
     Active Substance: VALACYCLOVIR HYDROCHLORIDE
     Indication: PRODUCT USED FOR UNKNOWN INDICATION

REACTIONS (4)
  - Haemoglobin decreased [Unknown]
  - Febrile neutropenia [Not Recovered/Not Resolved]
  - White blood cell count decreased [Unknown]
  - Platelet count decreased [Unknown]

NARRATIVE: CASE EVENT DATE: 20110604
